FAERS Safety Report 16458437 (Version 1)
Quarter: 2019Q2

REPORT INFORMATION
  Report Type: Spontaneous
  Country: US (occurrence: US)
  Receive Date: 20190620
  Receipt Date: 20190620
  Transmission Date: 20190711
  Serious: No
  Sender: FDA-Public Use
  Company Number: US-THERAPEUTICSMD-2019TMD00338

PATIENT
  Sex: Female
  Weight: 63.49 kg

DRUGS (1)
  1. IMVEXXY [Suspect]
     Active Substance: ESTRADIOL
     Indication: VULVOVAGINAL DRYNESS
     Dosage: 10 ?G, 1X/DAY BEFORE BED
     Route: 067
     Dates: start: 201901, end: 20190204

REACTIONS (6)
  - Discomfort [Recovering/Resolving]
  - Off label use [Recovered/Resolved]
  - Fluid retention [Recovering/Resolving]
  - Burning sensation [Recovering/Resolving]
  - Ovarian disorder [Recovering/Resolving]
  - Vulvovaginal mycotic infection [Recovered/Resolved]

NARRATIVE: CASE EVENT DATE: 2019
